FAERS Safety Report 5524210-5 (Version None)
Quarter: 2007Q4

REPORT INFORMATION
  Report Type: 
  Country: None (occurrence: None)
  Receive Date: 20071121
  Receipt Date: 20071109
  Transmission Date: 20080405
  Serious: Yes (Death)
  Sender: FDA-Public Use
  Company Number: US-PFIZER INC-2007075761

PATIENT
  Sex: Female
  Weight: 76.8 kg

DRUGS (13)
  1. SUTENT [Suspect]
     Indication: CLEAR CELL CARCINOMA OF THE KIDNEY
     Route: 048
     Dates: start: 20070727, end: 20070816
  2. COMPAZINE [Concomitant]
     Indication: NAUSEA
     Route: 048
  3. ATIVAN [Concomitant]
     Indication: NAUSEA
     Route: 048
  4. AMBIEN [Concomitant]
     Indication: INSOMNIA
     Route: 048
  5. LEVAQUIN [Concomitant]
     Indication: URINARY TRACT INFECTION
     Route: 048
  6. MAGIC MOUTHWASH [Concomitant]
     Indication: PAIN
  7. VIVELLE-DOT [Concomitant]
     Dosage: TEXT:0.1 MG/24HOURS
     Route: 061
  8. PROZAC [Concomitant]
     Route: 048
  9. ALLEGRA [Concomitant]
     Route: 048
  10. DIOVAN [Concomitant]
     Dosage: TEXT:160-12.5 MG
     Route: 048
  11. ADVAIR DISKUS 100/50 [Concomitant]
     Dosage: TEXT:1 PUFF
     Route: 055
  12. NASONEX [Concomitant]
     Route: 055
  13. DETROL [Concomitant]
     Route: 048

REACTIONS (1)
  - TUMOUR LYSIS SYNDROME [None]
